FAERS Safety Report 7408707-9 (Version None)
Quarter: 2011Q2

REPORT INFORMATION
  Report Type: 
  Country: None (occurrence: None)
  Receive Date: 20110412
  Receipt Date: 20110407
  Transmission Date: 20111010
  Serious: Yes (Hospitalization)
  Sender: FDA-Public Use
  Company Number: US-BRISTOL-MYERS SQUIBB COMPANY-15255276

PATIENT
  Age: 63 Year
  Sex: Male

DRUGS (4)
  1. RAMIPRIL [Concomitant]
  2. GLIPIZIDE [Concomitant]
  3. ONGLYZA [Suspect]
     Dates: start: 20100516, end: 20100701
  4. METFORMIN HCL [Concomitant]

REACTIONS (1)
  - PANCREATITIS ACUTE [None]
